FAERS Safety Report 13386224 (Version 1)
Quarter: 2017Q1

REPORT INFORMATION
  Report Type: Spontaneous
  Country: US (occurrence: US)
  Receive Date: 20170330
  Receipt Date: 20170330
  Transmission Date: 20170429
  Serious: No
  Sender: FDA-Public Use
  Company Number: US-009507513-1703USA012708

PATIENT
  Sex: Female
  Weight: 64.85 kg

DRUGS (1)
  1. IMPLANON [Suspect]
     Active Substance: ETONOGESTREL
     Dosage: 1 IMPLANT, UNK
     Route: 059
     Dates: start: 20160901, end: 20170328

REACTIONS (2)
  - Mood swings [Unknown]
  - Vaginal haemorrhage [Unknown]
